FAERS Safety Report 10420989 (Version 1)
Quarter: 2014Q3

REPORT INFORMATION
  Report Type: Report from Study
  Country: JP (occurrence: None)
  Receive Date: 20140828
  Receipt Date: 20140828
  Transmission Date: 20150326
  Serious: Yes (Hospitalization)
  Sender: FDA-Public Use
  Company Number: 2014JP007292

PATIENT
  Age: 50 Year
  Sex: Male

DRUGS (6)
  1. RISPERDAL [Concomitant]
     Active Substance: RISPERIDONE
  2. ANKINETON /00079501/ (BIPERIDEN) [Concomitant]
  3. SEROQUEL [Concomitant]
     Active Substance: QUETIAPINE FUMARATE
  4. MYSLEE (ZOLPIDEM TARTRATE) TABLET [Concomitant]
  5. REGNITE (GABAPENTIN ENACARBIL) TABLET, 300MG [Suspect]
     Active Substance: GABAPENTIN ENACARBIL
     Indication: RESTLESS LEGS SYNDROME
     Dosage: 300 MG, ONCE DAILY, ORAL
     Route: 048
     Dates: start: 20130809, end: 20130827
  6. CLONAZEPAM (CLONAZEPAM) [Concomitant]

REACTIONS (2)
  - Renal impairment [None]
  - Sedation [None]

NARRATIVE: CASE EVENT DATE: 20130826
